FAERS Safety Report 4728735-1 (Version None)
Quarter: 2005Q3

REPORT INFORMATION
  Report Type: 
  Country: None (occurrence: None)
  Receive Date: 20050729
  Receipt Date: 20050518
  Transmission Date: 20060218
  Serious: Yes (Congenital Anomaly)
  Sender: FDA-Public Use
  Company Number: US-GLAXOSMITHKLINE-A0559073A

PATIENT
  Sex: Male

DRUGS (5)
  1. COMBIVIR [Suspect]
     Indication: HIV INFECTION
     Dosage: 1TAB TWICE PER DAY
     Dates: start: 20050215, end: 20050504
  2. RETROVIR [Suspect]
  3. RETROVIR [Suspect]
     Indication: ANTIVIRAL PROPHYLAXIS
     Dosage: 5MG FOUR TIMES PER DAY
     Route: 048
  4. KALETRA [Concomitant]
     Indication: HIV INFECTION
     Dosage: 3CAP TWICE PER DAY
     Dates: start: 20050215, end: 20050504
  5. PENICILLIN [Concomitant]

REACTIONS (6)
  - CARDIAC DISORDER [None]
  - CARDIAC MURMUR [None]
  - FALLOT'S TETRALOGY [None]
  - HYPERBILIRUBINAEMIA [None]
  - TACHYCARDIA [None]
  - TACHYPNOEA [None]
